FAERS Safety Report 25128946 (Version 2)
Quarter: 2025Q2

REPORT INFORMATION
  Report Type: Report from Study
  Country: US (occurrence: US)
  Receive Date: 20250327
  Receipt Date: 20250511
  Transmission Date: 20250716
  Serious: No
  Sender: SANOFI AVENTIS
  Company Number: US-SANOFI-02460744

PATIENT
  Age: 80 Year
  Sex: Male

DRUGS (15)
  1. DUPILUMAB [Suspect]
     Active Substance: DUPILUMAB
     Indication: Skin irritation
     Dosage: 300 MG, QOW
     Route: 058
     Dates: start: 20240717
  2. DUPILUMAB [Suspect]
     Active Substance: DUPILUMAB
     Indication: Dermatitis atopic
  3. MONTELUKAST [Concomitant]
     Active Substance: MONTELUKAST
  4. VALACYCLOVIR [Concomitant]
     Active Substance: VALACYCLOVIR HYDROCHLORIDE
  5. MUCINEX [Concomitant]
     Active Substance: GUAIFENESIN
  6. LISINOPRIL [Concomitant]
     Active Substance: LISINOPRIL
  7. LEVOTHYROXINE [Concomitant]
     Active Substance: LEVOTHYROXINE
  8. SIMVASTATIN [Concomitant]
     Active Substance: SIMVASTATIN
  9. MINERALS\VITAMINS [Concomitant]
     Active Substance: MINERALS\VITAMINS
  10. MELATONIN [Concomitant]
     Active Substance: MELATONIN
  11. VIIBRYD [Concomitant]
     Active Substance: VILAZODONE HYDROCHLORIDE
  12. ASPIRIN [Concomitant]
     Active Substance: ASPIRIN
  13. FLECAINIDE [Concomitant]
     Active Substance: FLECAINIDE
  14. CLONAZEPAM [Concomitant]
     Active Substance: CLONAZEPAM
  15. FAMOTIDINE [Concomitant]
     Active Substance: FAMOTIDINE

REACTIONS (2)
  - Influenza [Unknown]
  - Pharyngitis streptococcal [Unknown]
